FAERS Safety Report 8539169 (Version 7)
Quarter: 2013Q4

REPORT INFORMATION
  Report Type: Report from Study
  Country: AU (occurrence: AU)
  Receive Date: 20120420
  Receipt Date: 20131108
  Transmission Date: 20140711
  Serious: Yes (Hospitalization)
  Sender: FDA-Public Use
  Company Number: AU-MSD-2012SP019561

PATIENT
  Age: 34 Year
  Sex: Female
  Weight: 57.5 kg

DRUGS (16)
  1. RIBAVIRIN [Suspect]
     Indication: HEPATITIS C
     Dosage: 1000 MG, QD
     Route: 048
     Dates: start: 20120105, end: 20120327
  2. PEGINTERFERON ALFA-2A [Suspect]
     Indication: HEPATITIS C
     Dosage: 180 ?G, QW
     Route: 058
     Dates: start: 20120105, end: 20120321
  3. PEGINTERFERON ALFA-2A [Suspect]
     Dosage: 135 ?G, QW
     Route: 058
     Dates: start: 20120322, end: 20120322
  4. GS-5885 [Suspect]
     Indication: HEPATITIS C
     Dosage: 30 MG, QD
     Route: 048
     Dates: start: 20120105, end: 20120327
  5. STUDY DRUG (UNSPECIFIED) [Suspect]
     Indication: HEPATITIS C
     Dosage: 200 MG, QD
     Route: 048
     Dates: start: 20120105, end: 20120327
  6. ALBUTEROL [Concomitant]
     Indication: PRODUCT USED FOR UNKNOWN INDICATION
     Dosage: UPDATE (12-APR-2012)
     Route: 065
     Dates: start: 1995
  7. OMEGA-3 MARINE TRIGLYCERIDES [Concomitant]
     Indication: PRODUCT USED FOR UNKNOWN INDICATION
     Dosage: UPDATE (12-APR-2012) :  00931501/ (DOCOSAHEXANOIC ACID, EICOSAPENTAENOIC ACID)
     Route: 065
     Dates: start: 2010
  8. MK-9353 [Concomitant]
     Indication: PRODUCT USED FOR UNKNOWN INDICATION
     Dosage: UPDATE (12-APR-2012)
     Route: 065
     Dates: start: 2010
  9. YASMIN [Concomitant]
     Indication: PRODUCT USED FOR UNKNOWN INDICATION
     Dosage: UPDATE (12-APR-2012)
     Route: 065
     Dates: start: 201112
  10. IMPLANON [Concomitant]
     Indication: PRODUCT USED FOR UNKNOWN INDICATION
     Dosage: UPDATE (12-APR-2012)
     Route: 065
     Dates: start: 2010
  11. METAMUCIL [Concomitant]
     Indication: PRODUCT USED FOR UNKNOWN INDICATION
     Dosage: UPDATE (12-APR-2012)
     Route: 065
     Dates: start: 20120110
  12. IBUPROFEN [Concomitant]
     Indication: PRODUCT USED FOR UNKNOWN INDICATION
     Dosage: UPDATE (12-APR-2012)
     Route: 065
     Dates: start: 20120105
  13. PROCHLORPERAZINE [Concomitant]
     Indication: PRODUCT USED FOR UNKNOWN INDICATION
     Dosage: UPDATE (12-APR-2012)
     Route: 065
     Dates: start: 20120114
  14. FLUCONAZOLE [Concomitant]
     Indication: PRODUCT USED FOR UNKNOWN INDICATION
     Dosage: UPDATE (12-APR-2012)
     Route: 065
     Dates: start: 20120305, end: 20120305
  15. LORAZEPAM [Concomitant]
     Indication: PRODUCT USED FOR UNKNOWN INDICATION
     Dosage: UPDATE (12-APR-2012)
     Route: 065
     Dates: start: 20120316
  16. METOCLOPRAMIDE [Concomitant]
     Indication: PRODUCT USED FOR UNKNOWN INDICATION
     Dosage: UPDATE (12-APR-2012)
     Route: 065
     Dates: start: 20120314

REACTIONS (2)
  - Meningitis [Unknown]
  - Neutropenia [Recovered/Resolved]
